FAERS Safety Report 8376233-9 (Version None)
Quarter: 2012Q2

REPORT INFORMATION
  Report Type: 
  Country: None (occurrence: None)
  Receive Date: 20120522
  Receipt Date: 20120517
  Transmission Date: 20120825
  Serious: Yes (Death, Other)
  Sender: FDA-Public Use
  Company Number: US-BAYER-2011-061228

PATIENT
  Age: 70 Year
  Sex: Female
  Weight: 51 kg

DRUGS (18)
  1. LIPITOR [Concomitant]
  2. LISINOPRIL [Concomitant]
     Dosage: 40 MG, QD
  3. CAPTOPRIL [Concomitant]
  4. TRASYLOL [Suspect]
     Indication: ARTERIOGRAM CORONARY
     Dosage: 6000000 U, UNK (125CC FOLLOWED BY 30CC/HR CONTINUOUS)
     Route: 042
     Dates: start: 20061111
  5. TRASYLOL [Suspect]
     Indication: CORONARY ARTERY BYPASS
  6. METOPROLOL [Concomitant]
  7. RANITIDINE [Concomitant]
  8. HEPARIN [Concomitant]
  9. MIDAZOLAM [Concomitant]
     Dosage: UNK
     Dates: start: 20061111
  10. AMICAR [Concomitant]
     Dosage: UNK
     Dates: start: 20061111
  11. ASPIRIN [Concomitant]
  12. PANCURONIUM BROMIDE [Concomitant]
     Dosage: UNK
     Dates: start: 20061111
  13. TRASYLOL [Suspect]
     Indication: STERNOTOMY
  14. FENTANYL-100 [Concomitant]
     Dosage: UNK
     Dates: start: 20061111
  15. PROTAMINE SULFATE [Concomitant]
     Dosage: UNK
     Dates: start: 20061111
  16. EPINEPHRINE [Concomitant]
     Dosage: UNK
     Dates: start: 20061111
  17. NITROGLYCERIN [Concomitant]
     Dosage: UNK
     Dates: start: 20061111
  18. INSULIN [Concomitant]
     Dosage: UNK
     Dates: start: 20061111

REACTIONS (12)
  - MULTI-ORGAN FAILURE [None]
  - RENAL IMPAIRMENT [None]
  - UNEVALUABLE EVENT [None]
  - STRESS [None]
  - DEATH [None]
  - RENAL INJURY [None]
  - PAIN [None]
  - FEAR [None]
  - EMOTIONAL DISORDER [None]
  - ANHEDONIA [None]
  - RENAL FAILURE [None]
  - ANXIETY [None]
